FAERS Safety Report 14984879 (Version 1)
Quarter: 2018Q2

REPORT INFORMATION
  Report Type: Spontaneous
  Country: GB (occurrence: GB)
  Receive Date: 20180607
  Receipt Date: 20180607
  Transmission Date: 20180711
  Serious: Yes (Hospitalization)
  Sender: FDA-Public Use
  Company Number: GB-ELI_LILLY_AND_COMPANY-GB201805014213

PATIENT
  Age: 33 Year
  Sex: Female
  Weight: 97.97 kg

DRUGS (2)
  1. ZAPAIN [Concomitant]
     Active Substance: ACETAMINOPHEN\CODEINE PHOSPHATE
     Indication: PRODUCT USED FOR UNKNOWN INDICATION
     Dosage: UNK, UNKNOWN
     Route: 065
  2. DULOXETINE HYDROCHLORIDE. [Suspect]
     Active Substance: DULOXETINE HYDROCHLORIDE
     Indication: FIBROMYALGIA
     Dosage: 60 MG, UNKNOWN
     Route: 048
     Dates: start: 20180427, end: 20180512

REACTIONS (13)
  - Migraine [Recovering/Resolving]
  - Visual impairment [Unknown]
  - Drug dose titration not performed [Unknown]
  - Tremor [Unknown]
  - Loss of consciousness [Unknown]
  - Chest pain [Unknown]
  - Nausea [Not Recovered/Not Resolved]
  - Musculoskeletal pain [Unknown]
  - Emotional disorder [Unknown]
  - Anxiety [Unknown]
  - Pain in jaw [Unknown]
  - Cognitive disorder [Unknown]
  - Withdrawal syndrome [Unknown]

NARRATIVE: CASE EVENT DATE: 20180428
